FAERS Safety Report 7281734-0 (Version None)
Quarter: 2011Q1

REPORT INFORMATION
  Report Type: 
  Country: None (occurrence: None)
  Receive Date: 20110208
  Receipt Date: 20100603
  Transmission Date: 20110831
  Serious: Yes (Other)
  Sender: FDA-Public Use
  Company Number: US-PFIZER INC-2010070543

PATIENT
  Sex: Female
  Weight: 50.794 kg

DRUGS (11)
  1. CARAFATE [Concomitant]
     Dosage: UNK
  2. POTASSIUM CHLORIDE [Concomitant]
     Dosage: UNK
  3. DI-GESIC [Concomitant]
     Dosage: UNK
  4. DURAGESIC-50 [Concomitant]
     Dosage: UNK
  5. ONDANSETRON [Concomitant]
     Dosage: UNK
  6. PROMETHAZINE [Concomitant]
     Dosage: UNK
  7. EFFEXOR [Concomitant]
     Dosage: UNK
  8. NEXIUM [Concomitant]
     Dosage: UNK
  9. SUTENT [Suspect]
     Indication: RENAL CELL CARCINOMA
     Dosage: 50 MG, DAILY
     Route: 048
     Dates: start: 20090701
  10. AMBIEN [Concomitant]
     Dosage: UNK
  11. ROXANOL [Concomitant]
     Dosage: UNK

REACTIONS (3)
  - MEDICATION RESIDUE [None]
  - ANAEMIA [None]
  - PAIN [None]
